FAERS Safety Report 21396172 (Version 1)
Quarter: 2022Q3

REPORT INFORMATION
  Report Type: Spontaneous
  Country: US (occurrence: US)
  Receive Date: 20220930
  Receipt Date: 20220930
  Transmission Date: 20221027
  Serious: No
  Sender: FDA-Public Use
  Company Number: US-PFIZER INC-202201188108

PATIENT
  Sex: Female

DRUGS (8)
  1. PAXLOVID [Suspect]
     Active Substance: NIRMATRELVIR\RITONAVIR
     Indication: COVID-19 treatment
     Dosage: UNK
  2. MAGNESIUM SULFATE [Suspect]
     Active Substance: MAGNESIUM SULFATE
     Dosage: UNK
  3. MELATONIN [Suspect]
     Active Substance: MELATONIN
     Dosage: UNK
  4. RETINOL [Concomitant]
     Active Substance: RETINOL
     Indication: Vitamin supplementation
     Dosage: UNK
  5. DIMETHYL SULFONE [Concomitant]
     Active Substance: DIMETHYL SULFONE
     Indication: Connective tissue disorder
     Dosage: UNK
  6. LECITHIN [Concomitant]
     Active Substance: LECITHIN
     Dosage: (+SUNFLOWER..)
  7. LUTEIN [Concomitant]
     Active Substance: LUTEIN
     Dosage: UNK
  8. ZEAXANTHIN [Concomitant]
     Active Substance: ZEAXANTHIN
     Dosage: (EYE SUPPLEMENTS)

REACTIONS (1)
  - Malaise [Unknown]
